FAERS Safety Report 8539658-4 (Version None)
Quarter: 2012Q3

REPORT INFORMATION
  Report Type: 
  Country: None (occurrence: None)
  Receive Date: 20120726
  Receipt Date: 20110720
  Transmission Date: 20120928
  Serious: No
  Sender: FDA-Public Use
  Company Number: US-ASTRAZENECA-2008UW25904

PATIENT
  Age: 57 Year
  Sex: Male
  Weight: 74.8 kg

DRUGS (4)
  1. PROZAC [Concomitant]
     Dates: start: 19980101
  2. ZYPREXA [Concomitant]
     Dosage: 20-25 MG
     Dates: start: 19990101, end: 20010101
  3. DICYCLOMINE [Concomitant]
     Dates: start: 20070701
  4. SEROQUEL [Suspect]
     Indication: POST-TRAUMATIC STRESS DISORDER
     Route: 048
     Dates: start: 20051101, end: 20061001

REACTIONS (3)
  - IRRITABLE BOWEL SYNDROME [None]
  - TYPE 2 DIABETES MELLITUS [None]
  - GASTROINTESTINAL DISORDER [None]
